FAERS Safety Report 21194173 (Version 1)
Quarter: 2022Q3

REPORT INFORMATION
  Report Type: Spontaneous
  Country: US (occurrence: US)
  Receive Date: 20220810
  Receipt Date: 20220810
  Transmission Date: 20221027
  Serious: Yes (Other)
  Sender: FDA-Public Use
  Company Number: US-BRISTOL-MYERS SQUIBB COMPANY-2022-086182

PATIENT
  Age: 73 Year
  Sex: Male

DRUGS (1)
  1. THALOMID [Suspect]
     Active Substance: THALIDOMIDE
     Indication: Plasma cell myeloma
     Dosage: FREQ:TAKE 1 CAPSULE BY MOUTH ONCE?DAILY AT BEDTIME FOR 14 DAYS ON AND 7 DAYS OFF
     Route: 048
     Dates: start: 20220610

REACTIONS (1)
  - Plasma cell myeloma [Unknown]
